FAERS Safety Report 14386832 (Version 2)
Quarter: 2019Q4

REPORT INFORMATION
  Report Type: Spontaneous
  Country: US (occurrence: US)
  Receive Date: 20180115
  Receipt Date: 20191126
  Transmission Date: 20200122
  Serious: Yes (Other)
  Sender: FDA-Public Use
  Company Number: US-SA-2017SA163558

PATIENT
  Age: 56 Year
  Sex: Female
  Weight: 89.8 kg

DRUGS (13)
  1. DEXILANT [Concomitant]
     Active Substance: DEXLANSOPRAZOLE
     Dosage: UNK UNK, UNK
     Route: 065
     Dates: start: 2010
  2. METFORMIN [Concomitant]
     Active Substance: METFORMIN HYDROCHLORIDE
     Dosage: UNK UNK, UNK
     Route: 065
     Dates: start: 2010
  3. TAXOTERE [Suspect]
     Active Substance: DOCETAXEL
     Dosage: 5 MG,QCY
     Route: 042
  4. ALEVE [Concomitant]
     Active Substance: NAPROXEN SODIUM
     Indication: BREAST CANCER
     Dosage: UNK UNK,UNK
     Route: 065
     Dates: start: 2007
  5. KOMBIGLYZE XR [Concomitant]
     Active Substance: METFORMIN HYDROCHLORIDE\SAXAGLIPTIN HYDROCHLORIDE
     Indication: BREAST CANCER
     Dosage: UNK UNK,UNK
     Route: 065
     Dates: start: 2010
  6. TAXOTERE [Suspect]
     Active Substance: DOCETAXEL
     Indication: BREAST CANCER FEMALE
     Dosage: 5 MG,QCY
     Route: 042
     Dates: start: 20090504, end: 20090504
  7. LISINOPRIL. [Concomitant]
     Active Substance: LISINOPRIL
     Indication: BREAST CANCER
     Dosage: UNK UNK,UNK
     Route: 065
     Dates: start: 2010
  8. LISINOPRIL. [Concomitant]
     Active Substance: LISINOPRIL
     Dosage: UNK
  9. LEVOTHYROXINE. [Concomitant]
     Active Substance: LEVOTHYROXINE
     Indication: BREAST CANCER
     Dosage: UNK UNK,UNK
     Route: 065
     Dates: start: 2010
  10. LEVEMIR [Concomitant]
     Active Substance: INSULIN DETEMIR
     Dosage: UNK UNK,UNK
     Route: 065
     Dates: start: 2016
  11. TAMOXIFEN [Concomitant]
     Active Substance: TAMOXIFEN
     Indication: BREAST CANCER
     Dosage: UNK UNK,UNK
     Route: 065
     Dates: start: 201003
  12. FLUOROURACIL. [Concomitant]
     Active Substance: FLUOROURACIL
     Indication: BREAST CANCER
  13. ARIMIDEX [Concomitant]
     Active Substance: ANASTROZOLE
     Dosage: UNK UNK, UNK
     Route: 065
     Dates: start: 2010

REACTIONS (6)
  - Impaired quality of life [Unknown]
  - Pain [Unknown]
  - Psychological trauma [Unknown]
  - Alopecia [Not Recovered/Not Resolved]
  - Emotional distress [Unknown]
  - Anxiety [Unknown]

NARRATIVE: CASE EVENT DATE: 2014
